FAERS Safety Report 19027170 (Version 2)
Quarter: 2021Q1

REPORT INFORMATION
  Report Type: Report from Study
  Country: GB (occurrence: GB)
  Receive Date: 20210318
  Receipt Date: 20210323
  Transmission Date: 20210420
  Serious: Yes (Other)
  Sender: FDA-Public Use
  Company Number: GB-IPSEN BIOPHARMACEUTICALS, INC.-2021-01623

PATIENT
  Sex: Female

DRUGS (1)
  1. SOMATULINE AUTOGEL [Suspect]
     Active Substance: LANREOTIDE ACETATE
     Indication: NEUROENDOCRINE TUMOUR
     Dosage: 90MG/0.3 ML
     Route: 065

REACTIONS (7)
  - Illness [Unknown]
  - Back pain [Recovering/Resolving]
  - Hypersensitivity [Unknown]
  - Myocardial infarction [Unknown]
  - Off label use [Unknown]
  - Chest pain [Recovering/Resolving]
  - Nausea [Recovering/Resolving]
